FAERS Safety Report 11236555 (Version 1)
Quarter: 2015Q3

REPORT INFORMATION
  Report Type: Spontaneous
  Country: US (occurrence: US)
  Receive Date: 20150702
  Receipt Date: 20150702
  Transmission Date: 20151125
  Serious: Yes (Hospitalization)
  Sender: FDA-Public Use
  Company Number: US-TAKEDA-2015TUS003237

PATIENT
  Age: 40 Year
  Sex: Female
  Weight: 81.63 kg

DRUGS (4)
  1. CONTRAVE [Suspect]
     Active Substance: BUPROPION HYDROCHLORIDE\NALTREXONE HYDROCHLORIDE
     Dosage: ONE TAB IN MORNING AND THEN ONE TAB IN EVENING
     Route: 048
     Dates: start: 2015, end: 201502
  2. CONTRAVE [Suspect]
     Active Substance: BUPROPION HYDROCHLORIDE\NALTREXONE HYDROCHLORIDE
     Dosage: TWO TABLETS IN THE MORNING AND ONE TABLET IN THE EVENING
     Route: 048
     Dates: start: 201502, end: 2015
  3. CONTRAVE [Suspect]
     Active Substance: BUPROPION HYDROCHLORIDE\NALTREXONE HYDROCHLORIDE
     Indication: OVERWEIGHT
     Dosage: 1 TABLET, QD
     Route: 048
     Dates: start: 201501, end: 201501
  4. CONTRAVE [Suspect]
     Active Substance: BUPROPION HYDROCHLORIDE\NALTREXONE HYDROCHLORIDE
     Dosage: ONE TABLET IN THE MORNING AND ONE TABLET IN THE EVENING
     Route: 048
     Dates: start: 2015, end: 201503

REACTIONS (3)
  - Menstrual disorder [Unknown]
  - Haemoglobin abnormal [Unknown]
  - Nausea [Unknown]
